FAERS Safety Report 12572774 (Version 4)
Quarter: 2016Q3

REPORT INFORMATION
  Report Type: Spontaneous
  Country: US (occurrence: US)
  Receive Date: 20160720
  Receipt Date: 20160928
  Transmission Date: 20161109
  Serious: Yes (Other)
  Sender: FDA-Public Use
  Company Number: US-TEVA-669052USA

PATIENT
  Age: 36 Year
  Sex: Female

DRUGS (1)
  1. ZECUITY [Suspect]
     Active Substance: SUMATRIPTAN SUCCINATE
     Indication: HEADACHE
     Route: 062
     Dates: start: 201606, end: 201606

REACTIONS (13)
  - Product physical issue [Recovered/Resolved]
  - Application site erythema [Recovered/Resolved]
  - Application site irritation [Recovered/Resolved]
  - Application site burn [Recovered/Resolved]
  - Sunburn [Recovered/Resolved]
  - Application site warmth [Recovered/Resolved]
  - Application site discomfort [Recovered/Resolved]
  - Application site pain [Recovered/Resolved]
  - Application site pain [Unknown]
  - Application site vesicles [Recovered/Resolved]
  - Application site paraesthesia [Recovered/Resolved]
  - Application site discolouration [Recovered/Resolved]
  - Drug effect incomplete [Unknown]

NARRATIVE: CASE EVENT DATE: 201606
